FAERS Safety Report 9691684 (Version 3)
Quarter: 2013Q4

REPORT INFORMATION
  Report Type: Report from Study
  Country: US (occurrence: US)
  Receive Date: 20131115
  Receipt Date: 20131127
  Transmission Date: 20140711
  Serious: Yes (Hospitalization)
  Sender: FDA-Public Use
  Company Number: US-ABBVIE-13P-163-1167610-00

PATIENT
  Age: 56 Year
  Sex: Male

DRUGS (11)
  1. HUMIRA [Suspect]
     Indication: PSORIASIS
     Route: 058
     Dates: start: 20130829, end: 20131004
  2. HUMIRA [Suspect]
     Dosage: LOADING DOSE
     Route: 058
  3. NEURONTIN [Concomitant]
  4. METOPROLOL [Concomitant]
  5. LISINOPRIL [Concomitant]
  6. NIACIN [Concomitant]
  7. METFORMIN [Concomitant]
  8. JANUVIA [Concomitant]
  9. DIGOXIN [Concomitant]
  10. FUROSEMIDE [Concomitant]
  11. DILITIAZEM [Concomitant]

REACTIONS (2)
  - Shock [Recovered/Resolved]
  - Pneumonia [Unknown]
